FAERS Safety Report 9981147 (Version 2)
Quarter: 2014Q2

REPORT INFORMATION
  Report Type: Spontaneous
  Country: US (occurrence: US)
  Receive Date: 20140307
  Receipt Date: 20140610
  Transmission Date: 20141212
  Serious: Yes (Hospitalization, Other)
  Sender: FDA-Public Use
  Company Number: US-BAYER-2014-031366

PATIENT
  Age: 75 Year
  Sex: Female

DRUGS (4)
  1. BETASERON [Suspect]
     Indication: MULTIPLE SCLEROSIS
     Dosage: 0.3 MG, QOD
     Dates: start: 199402
  2. AMPHETAMINE SALTS [Concomitant]
     Indication: FATIGUE
     Dosage: 5 MG EVERY MORNING AND 5MG AT NOON AS NEEDED
     Route: 048
  3. MIRTAZAPINE [Concomitant]
     Dosage: 15 MG, QD
     Route: 048
  4. IPRATROPIUM [Concomitant]
     Dosage: 2 SPRAYS IN NOSTRIL TID AS DIRECTED
     Route: 045

REACTIONS (8)
  - Weight decreased [None]
  - Stress [None]
  - Influenza like illness [None]
  - Fatigue [None]
  - Malaise [None]
  - Breast cancer [None]
  - Malaise [None]
  - Pancreatitis [None]
